FAERS Safety Report 25251008 (Version 3)
Quarter: 2025Q2

REPORT INFORMATION
  Report Type: Report from Study
  Country: TW (occurrence: TW)
  Receive Date: 20250429
  Receipt Date: 20250618
  Transmission Date: 20250717
  Serious: Yes (Life-Threatening, Hospitalization)
  Sender: PFIZER
  Company Number: TW-PFIZER INC-PV202500049956

PATIENT
  Age: 4 Day
  Weight: 0.9 kg

DRUGS (4)
  1. MEROPENEM [Suspect]
     Active Substance: MEROPENEM
     Indication: Pneumonia
     Dosage: 40 MG/KG/DAY, ADMINISTERED EVERY 12 H
     Route: 042
  2. MEROPENEM [Suspect]
     Active Substance: MEROPENEM
     Indication: Bacterial infection
  3. COLISTIN [Suspect]
     Active Substance: COLISTIN
     Indication: Pneumonia
     Dosage: 3 MG CBA/KG PER DOSE, ADMINISTERED EVERY 12 H, 2X/DAY
     Route: 055
  4. COLISTIN [Suspect]
     Active Substance: COLISTIN
     Indication: Bacterial infection

REACTIONS (1)
  - Drug ineffective [Unknown]
